FAERS Safety Report 5479204-5 (Version None)
Quarter: 2007Q4

REPORT INFORMATION
  Report Type: 
  Country: None (occurrence: None)
  Receive Date: 20071008
  Receipt Date: 20071003
  Transmission Date: 20080405
  Serious: Yes (Death, Hospitalization)
  Sender: FDA-Public Use
  Company Number: CH-JNJFOC-20070905735

PATIENT
  Age: 87 Year
  Sex: Male

DRUGS (12)
  1. HALDOL [Suspect]
     Route: 048
  2. HALDOL [Suspect]
     Indication: DRUG USE FOR UNKNOWN INDICATION
     Route: 048
  3. DIPIPERON [Suspect]
     Route: 048
  4. DIPIPERON [Suspect]
     Indication: DRUG USE FOR UNKNOWN INDICATION
     Route: 048
  5. TEMESTA [Concomitant]
  6. TEMESTA [Concomitant]
  7. FLUIMUCIL [Concomitant]
     Route: 048
  8. ASPIRIN [Concomitant]
     Route: 048
  9. DEANXIT [Concomitant]
     Route: 048
  10. SEROPRAM [Concomitant]
     Route: 048
  11. CONCOR [Concomitant]
     Route: 048
  12. PRAVALOTIN [Concomitant]
     Route: 048

REACTIONS (4)
  - DEATH [None]
  - DYSPNOEA [None]
  - HYPERVENTILATION [None]
  - PANIC ATTACK [None]
